FAERS Safety Report 8520498-7 (Version None)
Quarter: 2012Q3

REPORT INFORMATION
  Report Type: 
  Country: None (occurrence: None)
  Receive Date: 20120719
  Receipt Date: 20120712
  Transmission Date: 20120928
  Serious: Yes (Other)
  Sender: FDA-Public Use
  Company Number: US-BAYER-2012-070679

PATIENT
  Age: 49 Year
  Sex: Female
  Weight: 60 kg

DRUGS (13)
  1. ASPIRIN [Concomitant]
  2. ACETAMINOPHEN [Concomitant]
  3. PROPOXYPHENE NAPSYLATE W/ ACETAMINOPHEN [Concomitant]
  4. PROPRANOLOL [Concomitant]
     Indication: ARRHYTHMIA
     Dosage: 20 MG, UNK
  5. LANOXIN [Concomitant]
     Indication: ARRHYTHMIA
     Dosage: 0.25 MG, UNK
  6. MEGESTROL ACETATE [Concomitant]
     Dosage: 20 MG, UNK
  7. HYDROCHLOROTHIAZIDE [Concomitant]
     Dosage: 12.5 MG, UNK
  8. HISTADE [Concomitant]
     Dosage: 120 MG, UNK
  9. CYCLOBENAZPRINE [Concomitant]
     Dosage: 10 MG, UNK
  10. MEGACE [Concomitant]
  11. YASMIN [Suspect]
  12. HISTADE [Concomitant]
     Indication: SINUS DISORDER
     Dosage: 12 MG, UNK
  13. PROPOXYPHENE NAPSYLATE W/ ACETAMINOPHEN [Concomitant]
     Dosage: 100/650

REACTIONS (1)
  - DEEP VEIN THROMBOSIS [None]
